FAERS Safety Report 9539708 (Version 2)
Quarter: 2013Q4

REPORT INFORMATION
  Report Type: Spontaneous
  Country: US (occurrence: US)
  Receive Date: 20130920
  Receipt Date: 20131004
  Transmission Date: 20140711
  Serious: Yes (Hospitalization)
  Sender: FDA-Public Use
  Company Number: US-ROCHE-1276210

PATIENT
  Sex: Male
  Weight: 77.18 kg

DRUGS (7)
  1. VALIUM [Suspect]
     Indication: ANXIETY
     Route: 065
     Dates: start: 2012
  2. XANAX [Suspect]
     Indication: ANXIETY
     Route: 065
     Dates: start: 2012, end: 2012
  3. LITHIUM CARBONATE [Suspect]
     Indication: BIPOLAR I DISORDER
     Route: 065
  4. LITHIUM CARBONATE [Suspect]
     Route: 065
  5. LITHIUM CARBONATE [Suspect]
     Route: 065
  6. VIAGRA [Suspect]
     Indication: ERECTILE DYSFUNCTION
     Dosage: NOV/DEC2012
     Route: 065
     Dates: start: 2012
  7. NEXIUM [Concomitant]
     Indication: DYSPEPSIA

REACTIONS (5)
  - Suicide attempt [Unknown]
  - Erectile dysfunction [Unknown]
  - Drug intolerance [Unknown]
  - Somnolence [Unknown]
  - Intervertebral disc protrusion [Unknown]
